FAERS Safety Report 24761089 (Version 1)
Quarter: 2024Q4

REPORT INFORMATION
  Report Type: Spontaneous
  Country: US (occurrence: US)
  Receive Date: 20241220
  Receipt Date: 20241220
  Transmission Date: 20250115
  Serious: Yes (Death, Other)
  Sender: AMGEN
  Company Number: US-AMGEN-USASP2024247186

PATIENT

DRUGS (5)
  1. PEGFILGRASTIM [Suspect]
     Active Substance: PEGFILGRASTIM
     Indication: Lymphocytic leukaemia
     Dosage: UNK UNK, CYCLICAL  (ON DAY 16 OF CYCLES 2-7)
     Route: 065
  2. DINACICLIB [Suspect]
     Active Substance: DINACICLIB
     Indication: Lymphocytic leukaemia
     Dosage: UNK UNK, CYCLICAL  (2-HOUR INFUSION ON DAYS 1, 8, AND 15)
     Route: 065
  3. OFATUMUMAB [Concomitant]
     Active Substance: OFATUMUMAB
     Indication: Lymphocytic leukaemia
     Dosage: UNK UNK, CYCLICAL ((WEEKLY X 8, MONTHLY X 4) STARTING ON CYCLE 1 DAY 1)
     Route: 065
  4. CIPROFLOXACIN [Concomitant]
     Active Substance: CIPROFLOXACIN
     Indication: Lymphocytic leukaemia
     Dosage: UNK UNK, CYCLICAL
  5. SULFAMETHOXAZOLE\TRIMETHOPRIM [Concomitant]
     Active Substance: SULFAMETHOXAZOLE\TRIMETHOPRIM
     Indication: Lymphocytic leukaemia
     Dosage: UNK UNK, CYCLICAL

REACTIONS (2)
  - Sepsis [Fatal]
  - Tumour lysis syndrome [Unknown]
